FAERS Safety Report 4337088-2 (Version None)
Quarter: 2004Q1

REPORT INFORMATION
  Report Type: 
  Country: None (occurrence: None)
  Receive Date: 20040329
  Receipt Date: 20031126
  Transmission Date: 20041129
  Serious: No
  Sender: FDA-Public Use
  Company Number: USA031153483

PATIENT
  Age: 11 Year
  Sex: Male
  Weight: 46 kg

DRUGS (1)
  1. STRATTERA [Suspect]
     Indication: ATTENTION DEFICIT/HYPERACTIVITY DISORDER
     Dosage: 40 MG/DAY
     Dates: start: 20031125

REACTIONS (6)
  - ABNORMAL BEHAVIOUR [None]
  - BODY TEMPERATURE DECREASED [None]
  - COLD SWEAT [None]
  - DECREASED ACTIVITY [None]
  - FEELING HOT [None]
  - FLUSHING [None]
